FAERS Safety Report 18973978 (Version 2)
Quarter: 2021Q1

REPORT INFORMATION
  Report Type: Spontaneous
  Country: US (occurrence: US)
  Receive Date: 20210305
  Receipt Date: 20210315
  Transmission Date: 20210420
  Serious: Yes (Other)
  Sender: FDA-Public Use
  Company Number: US-CIPLA LTD.-2021US01313

PATIENT

DRUGS (7)
  1. ZINC. [Concomitant]
     Active Substance: ZINC
     Indication: SYSTEMIC IMMUNE ACTIVATION
     Dosage: UNK, QD
     Route: 065
     Dates: start: 2020
  2. VESICARE [Concomitant]
     Active Substance: SOLIFENACIN SUCCINATE
     Indication: URINARY INCONTINENCE
     Dosage: 5 MILLIGRAM, QD
     Route: 065
     Dates: start: 2018
  3. ALENDRONATE [Suspect]
     Active Substance: ALENDRONATE SODIUM
     Indication: OSTEOPOROSIS
     Dosage: 70 MILLIGRAM, ONCE A WEEK
     Route: 048
     Dates: start: 2018
  4. ALENDRONATE [Suspect]
     Active Substance: ALENDRONATE SODIUM
     Dosage: 70 MILLIGRAM, ONCE A WEEK
     Route: 048
     Dates: start: 202102
  5. VITAMIN D3 [Concomitant]
     Active Substance: CHOLECALCIFEROL
     Indication: VITAMIN SUPPLEMENTATION
     Dosage: 1200 (UNITS UNSPECIFIED), QD
     Route: 065
     Dates: start: 2020
  6. GLUCOSAMINE CHONDROITIN + MSM [Concomitant]
     Active Substance: CHONDROITIN SULFATE (BOVINE)\DIMETHYL SULFONE\GLUCOSAMINE SULFATE
     Indication: ARTHROPATHY
     Dosage: UNK, QD
     Route: 065
     Dates: start: 2018
  7. CHOLESTOFF ORIGINAL [Concomitant]
     Indication: LOW DENSITY LIPOPROTEIN ABNORMAL
     Dosage: UNK, QD
     Route: 065
     Dates: start: 2020

REACTIONS (1)
  - Spinal pain [Recovered/Resolved]

NARRATIVE: CASE EVENT DATE: 2021
